FAERS Safety Report 17759363 (Version 1)
Quarter: 2020Q2

REPORT INFORMATION
  Report Type: Spontaneous
  Country: US (occurrence: US)
  Receive Date: 20200508
  Receipt Date: 20200508
  Transmission Date: 20200714
  Serious: Yes (Other)
  Sender: FDA-Public Use
  Company Number: US-AMGEN-USASP2020072847

PATIENT
  Age: 77 Year
  Sex: Female

DRUGS (4)
  1. CALMAG [Concomitant]
     Indication: BONE DISORDER
     Dosage: UNK UNK, QD
     Dates: start: 2017
  2. VITAMIN D3 [Concomitant]
     Active Substance: CHOLECALCIFEROL
     Indication: BONE DISORDER
     Dosage: UNK UNK, QD
     Dates: start: 2017
  3. PROLIA [Suspect]
     Active Substance: DENOSUMAB
     Indication: OSTEOPOROSIS POSTMENOPAUSAL
     Dosage: 60 MILLIGRAM, Q6MO
     Route: 065
  4. BOOST [Concomitant]
     Active Substance: DIETARY SUPPLEMENT
     Indication: BONE DISORDER
     Dosage: UNK UNK, QD
     Dates: start: 202004

REACTIONS (10)
  - Back pain [Unknown]
  - Dysstasia [Not Recovered/Not Resolved]
  - Joint noise [Unknown]
  - Abdominal discomfort [Unknown]
  - Erythema [Unknown]
  - Head injury [Unknown]
  - Balance disorder [Unknown]
  - Joint lock [Unknown]
  - Fall [Unknown]
  - Swelling [Unknown]

NARRATIVE: CASE EVENT DATE: 2020
